FAERS Safety Report 9254294 (Version 1)
Quarter: 2013Q2

REPORT INFORMATION
  Report Type: Spontaneous
  Country: IN (occurrence: None)
  Receive Date: 20130419
  Receipt Date: 20130419
  Transmission Date: 20140414
  Serious: Yes (Hospitalization, Other)
  Sender: FDA-Public Use
  Company Number: 2013P1004674

PATIENT
  Age: 30 Year
  Sex: Male

DRUGS (8)
  1. LITHIUM [Suspect]
     Indication: AFFECTIVE DISORDER
  2. OLANZAPINE [Concomitant]
  3. DIVALPROATE [Concomitant]
  4. SODIUM [Concomitant]
  5. HALOPERIDOL [Concomitant]
  6. HALOPERIDOL [Concomitant]
  7. THIOPENTONE [Concomitant]
  8. SUCCINYLOMOLINE [Concomitant]

REACTIONS (4)
  - Delusion of grandeur [None]
  - Agitation [None]
  - Convulsion [None]
  - Drug interaction [None]
